FAERS Safety Report 5289679-2 (Version None)
Quarter: 2007Q2

REPORT INFORMATION
  Report Type: 
  Country: None (occurrence: None)
  Receive Date: 20070406
  Receipt Date: 20070326
  Transmission Date: 20071010
  Serious: Yes (Other)
  Sender: FDA-Public Use
  Company Number: US-AVENTIS-200710938US

PATIENT
  Sex: Female

DRUGS (26)
  1. LOVENOX [Suspect]
     Route: 058
     Dates: start: 20050701, end: 20060401
  2. LOVENOX [Suspect]
     Route: 058
     Dates: start: 20060401, end: 20060501
  3. LOVENOX [Suspect]
     Route: 058
     Dates: start: 20060501
  4. LOVENOX [Suspect]
     Route: 058
     Dates: start: 20060601
  5. DECADRON [Suspect]
     Route: 048
  6. BUMEX [Concomitant]
     Dosage: DOSE: UNK
  7. CLONAZEPAM [Concomitant]
  8. CYMBALTA [Concomitant]
     Route: 048
  9. NEURONTIN [Concomitant]
     Route: 048
  10. NEURONTIN [Concomitant]
     Route: 048
  11. VICODIN [Concomitant]
     Indication: PAIN
     Dosage: DOSE: 5-500
     Route: 048
  12. FERROUS SULFATE [Concomitant]
     Route: 048
  13. SYNTHROID [Concomitant]
     Route: 048
  14. SYNTHROID [Concomitant]
     Route: 048
  15. SYNTHROID [Concomitant]
     Route: 048
  16. LUNESTA [Concomitant]
     Dosage: DOSE: UNK
  17. NEXIUM [Concomitant]
     Route: 048
  18. NOVOLOG [Concomitant]
     Dosage: DOSE: 2 - 4
  19. POTASSIUM ACETATE [Concomitant]
  20. SENOKOT [Concomitant]
     Dosage: DOSE: 8.6-50
     Route: 048
  21. LACTAID [Concomitant]
     Route: 048
  22. MIRAPEX [Concomitant]
     Route: 048
  23. XANAX [Concomitant]
     Route: 048
  24. HYDROCHLOROTHIAZIDE [Concomitant]
     Route: 048
  25. ATACAND [Concomitant]
     Route: 048
  26. LIPITOR [Concomitant]
     Route: 048

REACTIONS (10)
  - ACTIVITIES OF DAILY LIVING IMPAIRED [None]
  - CHEST PAIN [None]
  - DYSPNOEA [None]
  - INCREASED APPETITE [None]
  - INJECTION SITE BRUISING [None]
  - INJECTION SITE HAEMORRHAGE [None]
  - OEDEMA PERIPHERAL [None]
  - PULMONARY FIBROSIS [None]
  - RASH MACULAR [None]
  - WEIGHT INCREASED [None]
